FAERS Safety Report 8907038 (Version 3)
Quarter: 2014Q1

REPORT INFORMATION
  Report Type: Spontaneous
  Country: US (occurrence: US)
  Receive Date: 20121114
  Receipt Date: 20140321
  Transmission Date: 20141002
  Serious: Yes (Hospitalization, Other)
  Sender: FDA-Public Use
  Company Number: US-BAYER-2012-116723

PATIENT
  Age: 23 Year
  Sex: Female
  Weight: 91 kg

DRUGS (10)
  1. YASMIN [Suspect]
     Dosage: UNK
     Route: 048
     Dates: start: 200310, end: 200412
  2. PHENADOZ [Concomitant]
     Dosage: 25 MG, UNK
     Dates: start: 20040110
  3. HYDROCODONE W/ACETAMINOPHEN [Concomitant]
     Dosage: 7.5/500, UNK
     Dates: start: 20040110
  4. OXYCODONE/APAP [Concomitant]
     Dosage: 5/325;UNK
     Dates: start: 20040112
  5. PRILOSEC [Concomitant]
     Dosage: UNK
     Dates: start: 20040314
  6. LORTAB [Concomitant]
  7. PERCOCET [Concomitant]
  8. TORADOL [Concomitant]
     Route: 042
  9. PEPCID [Concomitant]
  10. PHENERGAN [Concomitant]

REACTIONS (9)
  - Cholecystitis chronic [None]
  - Cholecystectomy [None]
  - Injury [None]
  - Anxiety [None]
  - Emotional distress [None]
  - General physical health deterioration [None]
  - Pain [None]
  - Pain [None]
  - Anhedonia [None]
